FAERS Safety Report 21125162 (Version 1)
Quarter: 2022Q3

REPORT INFORMATION
  Report Type: Report from Study
  Country: IT (occurrence: IT)
  Receive Date: 20220725
  Receipt Date: 20220725
  Transmission Date: 20221027
  Serious: Yes (Hospitalization)
  Sender: FDA-Public Use
  Company Number: IT-ELI_LILLY_AND_COMPANY-IT202207008340

PATIENT

DRUGS (3)
  1. OLANZAPINE [Suspect]
     Active Substance: OLANZAPINE
     Indication: Bipolar II disorder
     Dosage: 2.5 MG, DAILY
     Route: 065
  2. PRAZEPAM [Interacting]
     Active Substance: PRAZEPAM
     Dosage: 10 MG, UNKNOWN
     Route: 065
  3. LITHIUM CARBONATE [Interacting]
     Active Substance: LITHIUM CARBONATE
     Dosage: 600 MG, UNKNOWN
     Route: 065

REACTIONS (2)
  - Somnolence [Unknown]
  - Sedation [Unknown]
